FAERS Safety Report 7389094-1 (Version None)
Quarter: 2011Q2

REPORT INFORMATION
  Report Type: 
  Country: None (occurrence: None)
  Receive Date: 20110401
  Receipt Date: 20110324
  Transmission Date: 20111010
  Serious: Yes (Other)
  Sender: FDA-Public Use
  Company Number: DE-ROCHE-763032

PATIENT
  Sex: Female
  Weight: 63 kg

DRUGS (26)
  1. MYCOPHENOLATE MOFETIL [Suspect]
     Route: 048
     Dates: start: 20101001, end: 20110215
  2. MYCOPHENOLATE MOFETIL [Suspect]
     Route: 048
     Dates: start: 20110303
  3. PREDNISOLONE [Suspect]
     Route: 048
     Dates: start: 20110302, end: 20110315
  4. PREDNISOLONE [Suspect]
     Route: 048
     Dates: start: 20110222, end: 20110301
  5. MYCOPHENOLATE MOFETIL [Suspect]
     Route: 048
     Dates: start: 20100623, end: 20100930
  6. TACROLIMUS [Suspect]
     Route: 048
     Dates: start: 20100706, end: 20100722
  7. PREDNISOLONE [Suspect]
     Route: 048
     Dates: start: 20100624, end: 20100624
  8. PREDNISOLONE [Suspect]
     Route: 048
     Dates: start: 20110316
  9. TACROLIMUS [Suspect]
     Route: 048
     Dates: start: 20100723, end: 20100805
  10. TACROLIMUS [Suspect]
     Route: 048
     Dates: start: 20100806, end: 20100816
  11. TACROLIMUS [Suspect]
     Route: 048
     Dates: start: 20100915, end: 20110215
  12. TACROLIMUS [Suspect]
     Route: 048
     Dates: start: 20110224
  13. PREDNISOLONE [Suspect]
     Route: 048
     Dates: start: 20110215, end: 20110221
  14. THYMOGLOBULIN [Suspect]
     Dosage: FORM: LIQUID
     Route: 042
     Dates: start: 20100623, end: 20100625
  15. TACROLIMUS [Suspect]
     Route: 048
     Dates: start: 20100623, end: 20100626
  16. TACROLIMUS [Suspect]
     Route: 048
     Dates: start: 20100627, end: 20100630
  17. TACROLIMUS [Suspect]
     Route: 048
     Dates: start: 20100701, end: 20100702
  18. PREDNISOLONE [Suspect]
     Route: 048
     Dates: start: 20100627, end: 20100630
  19. PREDNISOLONE [Suspect]
     Route: 048
     Dates: start: 20110207, end: 20110214
  20. PREDNISOLONE [Suspect]
     Route: 048
     Dates: start: 20100623, end: 20100623
  21. PREDNISOLONE [Suspect]
     Route: 048
     Dates: start: 20100626, end: 20100626
  22. MYCOPHENOLATE MOFETIL [Suspect]
     Route: 048
     Dates: start: 20110216, end: 20110302
  23. TACROLIMUS [Suspect]
     Route: 048
     Dates: start: 20100703, end: 20100705
  24. PREDNISOLONE [Suspect]
     Route: 048
     Dates: start: 20100625, end: 20100625
  25. TACROLIMUS [Suspect]
     Route: 048
     Dates: start: 20100817, end: 20100914
  26. TACROLIMUS [Suspect]
     Route: 048
     Dates: start: 20110216, end: 20110223

REACTIONS (1)
  - TRANSPLANT REJECTION [None]
